FAERS Safety Report 4370259-8 (Version None)
Quarter: 2004Q2

REPORT INFORMATION
  Report Type: 
  Country: None (occurrence: None)
  Receive Date: 20040603
  Receipt Date: 20040330
  Transmission Date: 20050107
  Serious: Yes (Other)
  Sender: FDA-Public Use
  Company Number: US-BRISTOL-MYERS SQUIBB COMPANY-12547006

PATIENT
  Age: 56 Year
  Sex: Female
  Weight: 95 kg

DRUGS (3)
  1. ABILIFY [Suspect]
     Indication: BIPOLAR DISORDER
     Route: 048
     Dates: start: 20040108
  2. OLANZAPINE [Concomitant]
     Dosage: 2 TO 3 TABLETS AT BEDTIME
  3. TOPIRMATE [Concomitant]

REACTIONS (1)
  - BLOOD GLUCOSE ABNORMAL [None]
